FAERS Safety Report 11695806 (Version 4)
Quarter: 2016Q3

REPORT INFORMATION
  Report Type: Spontaneous
  Country: US (occurrence: US)
  Receive Date: 20151104
  Receipt Date: 20160908
  Transmission Date: 20161109
  Serious: Yes (Death, Hospitalization, Congenital Anomaly, Other)
  Sender: FDA-Public Use
  Company Number: PHEH2015US022330

PATIENT
  Sex: Male

DRUGS (3)
  1. ZOFRAN [Suspect]
     Active Substance: ONDANSETRON HYDROCHLORIDE
     Indication: FOETAL EXPOSURE DURING PREGNANCY
     Route: 064
  2. ONDANSETRON DR REDDY [Suspect]
     Active Substance: ONDANSETRON
     Indication: FOETAL EXPOSURE DURING PREGNANCY
     Dosage: MOTHER DOSE: 04 MG
     Route: 064
  3. ONDANSETRON HYDROCHLORIDE. [Suspect]
     Active Substance: ONDANSETRON HYDROCHLORIDE
     Indication: FOETAL EXPOSURE DURING PREGNANCY
     Route: 064

REACTIONS (60)
  - DiGeorge^s syndrome [Fatal]
  - Right aortic arch [Unknown]
  - Single functional kidney [Unknown]
  - Thrombocytopenia [Unknown]
  - Anhedonia [Unknown]
  - Metabolic acidosis [Unknown]
  - Vascular malformation [Unknown]
  - Heart disease congenital [Unknown]
  - Seizure [Unknown]
  - Rib deformity [Unknown]
  - Pneumonia pseudomonal [Unknown]
  - Hydronephrosis [Unknown]
  - Thrombosis [Unknown]
  - Dyspnoea [Unknown]
  - Cardiac arrest [Fatal]
  - Left-to-right cardiac shunt [Unknown]
  - Congenital great vessel anomaly [Unknown]
  - Atrial septal defect [Unknown]
  - Dysmorphism [Unknown]
  - Spine malformation [Unknown]
  - Respiratory distress [Recovered/Resolved]
  - Nephrolithiasis [Unknown]
  - Hypoglycaemia neonatal [Recovered/Resolved]
  - Sepsis [Recovered/Resolved]
  - Pain [Unknown]
  - Hypoproteinaemia [Unknown]
  - Hypokalaemia [Unknown]
  - Bronchopulmonary dysplasia [Fatal]
  - Renal failure [Fatal]
  - Multiple congenital abnormalities [Unknown]
  - Congenital arterial malformation [Unknown]
  - Congenital tracheomalacia [Unknown]
  - Staphylococcal infection [Unknown]
  - Renal hypertrophy [Unknown]
  - Cyanosis neonatal [Unknown]
  - Pneumonitis [Recovered/Resolved]
  - Chylothorax [Unknown]
  - Encephalopathy neonatal [Unknown]
  - Dextrocardia [Unknown]
  - Congenital anomaly [Unknown]
  - Patent ductus arteriosus [Unknown]
  - Renal aplasia [Unknown]
  - Emotional distress [Unknown]
  - Cardiomegaly [Unknown]
  - Otitis media [Unknown]
  - Anxiety [Unknown]
  - Congenital tricuspid valve incompetence [Unknown]
  - Pulmonary hypertension [Recovered/Resolved]
  - Injury [Unknown]
  - Hypothyroidism [Unknown]
  - Petechiae [Recovered/Resolved]
  - Combined immunodeficiency [Fatal]
  - Congenital musculoskeletal anomaly [Unknown]
  - Cryptorchism [Unknown]
  - Acute respiratory failure [Unknown]
  - Hypocalcaemia [Unknown]
  - Hepatosplenomegaly neonatal [Unknown]
  - Foetal exposure during pregnancy [Unknown]
  - Anaemia [Unknown]
  - Sedation [Unknown]

NARRATIVE: CASE EVENT DATE: 20131220
